FAERS Safety Report 5901571-6 (Version None)
Quarter: 2008Q3

REPORT INFORMATION
  Report Type: 
  Country: None (occurrence: None)
  Receive Date: 20080929
  Receipt Date: 20080918
  Transmission Date: 20090109
  Serious: Yes (Death, Hospitalization)
  Sender: FDA-Public Use
  Company Number: DE-WYE-G01949708

PATIENT
  Age: 51 Year
  Sex: Female
  Weight: 90 kg

DRUGS (17)
  1. TYGACIL [Suspect]
     Indication: ABDOMINAL INFECTION
     Route: 042
     Dates: start: 20071008, end: 20071008
  2. TYGACIL [Suspect]
     Route: 042
     Dates: start: 20071009, end: 20071020
  3. MEROPENEM [Concomitant]
     Route: 042
     Dates: start: 20071001, end: 20071009
  4. FLUCONAZOLE [Concomitant]
     Dosage: UNKNOWN
     Route: 042
     Dates: start: 20070921, end: 20071021
  5. CIPROFLOXACIN [Concomitant]
     Route: 042
     Dates: start: 20071016, end: 20071030
  6. HEPARIN SODIUM [Concomitant]
  7. CYCLOSPORINE [Concomitant]
  8. MYCOPHENOLATE MOFETIL [Concomitant]
  9. PREDNISOLONE [Concomitant]
  10. MACROGOL [Concomitant]
  11. VITAMIN K TAB [Concomitant]
  12. PANTOPRAZOLE SODIUM [Concomitant]
  13. POTASSIUM CHLORIDE [Concomitant]
  14. POTASSIUM PHOSPHATE DIBASIC [Concomitant]
  15. INSULIN [Concomitant]
  16. LINEZOLID [Suspect]
     Route: 042
     Dates: start: 20070920, end: 20071008
  17. LINEZOLID [Suspect]
     Route: 042
     Dates: start: 20071021, end: 20071030

REACTIONS (6)
  - CONDITION AGGRAVATED [None]
  - DRUG INEFFECTIVE [None]
  - HEPATIC FAILURE [None]
  - MULTI-ORGAN FAILURE [None]
  - RESPIRATORY FAILURE [None]
  - SEPSIS [None]
